FAERS Safety Report 23979989 (Version 1)
Quarter: 2024Q2

REPORT INFORMATION
  Report Type: Other
  Country: GB (occurrence: GB)
  Receive Date: 20240617
  Receipt Date: 20240617
  Transmission Date: 20240717
  Serious: Yes (Other)
  Sender: FDA-Public Use
  Company Number: GB-STRIDES ARCOLAB LIMITED-2024SP006842

PATIENT
  Age: 52 Year
  Sex: Male
  Weight: 100 kg

DRUGS (8)
  1. GABAPENTIN [Suspect]
     Active Substance: GABAPENTIN
     Indication: Ill-defined disorder
     Dosage: UNK (TPP YC - PLEASE RECLASSIFY) (CAPSULE)
     Route: 065
     Dates: start: 20240524
  2. CITALOPRAM [Concomitant]
     Active Substance: CITALOPRAM\CITALOPRAM HYDROBROMIDE
     Indication: Ill-defined disorder
     Dosage: UNK, QD (TAKE ONE TABLET DAILY)
     Route: 065
     Dates: start: 20231205
  3. COCODAMOL [Concomitant]
     Active Substance: ACETAMINOPHEN\CODEINE PHOSPHATE
     Indication: Ill-defined disorder
     Dosage: UNK, QID (TAKE ONE OR TWO TABLETS UPTO FOUR TIMES DAILY F...),  TPP YC - PLEASE RECLASSIFY
     Route: 065
     Dates: start: 20231205
  4. NORTRIPTYLINE [Concomitant]
     Active Substance: NORTRIPTYLINE
     Indication: Ill-defined disorder
     Dosage: UNK, AT BED TIME (ONE TO TWO AT NIGHT)
     Route: 065
     Dates: start: 20240213, end: 20240515
  5. POLYETHYLENE GLYCOL 3350\POTASSIUM CHLORIDE\SODIUM BICARBONATE\SODIUM [Concomitant]
     Active Substance: POLYETHYLENE GLYCOL 3350\POTASSIUM CHLORIDE\SODIUM BICARBONATE\SODIUM CHLORIDE
     Indication: Ill-defined disorder
     Dosage: UNK (ONE OR TWO DAILY)
     Route: 065
     Dates: start: 20240213
  6. IBUPROFEN [Concomitant]
     Active Substance: IBUPROFEN
     Indication: Ill-defined disorder
     Dosage: UNK (TAKE ONE 3 - 4 TIMES A DAY FOR PAIN RLEIEF)
     Route: 065
     Dates: start: 20240501, end: 20240515
  7. LANSOPRAZOLE [Concomitant]
     Active Substance: LANSOPRAZOLE
     Indication: Ill-defined disorder
     Dosage: UNK, OD (TAKE ONE ONCE DAILY)
     Route: 065
     Dates: start: 20240501, end: 20240515
  8. GABAPENTIN [Concomitant]
     Active Substance: GABAPENTIN
     Indication: Ill-defined disorder
     Dosage: UNK (TAKE ONE CAPSULE A DAY ON DAY 1, TAKE ONE CAPSU...)
     Route: 065
     Dates: start: 20240515

REACTIONS (3)
  - Post-traumatic stress disorder [Recovered/Resolved]
  - Depression [Recovered/Resolved]
  - Anxiety [Recovered/Resolved]

NARRATIVE: CASE EVENT DATE: 20240524
